FAERS Safety Report 11446236 (Version 1)
Quarter: 2015Q3

REPORT INFORMATION
  Report Type: Spontaneous
  Country: US (occurrence: US)
  Receive Date: 20150902
  Receipt Date: 20150902
  Transmission Date: 20151125
  Serious: No
  Sender: FDA-Public Use
  Company Number: ALCN2015US001619

PATIENT
  Sex: Male

DRUGS (1)
  1. PREDNISOLONE ACETATE. [Suspect]
     Active Substance: PREDNISOLONE ACETATE
     Dosage: 1 GTT, Q4H
     Route: 047

REACTIONS (5)
  - Pain in jaw [Unknown]
  - Product taste abnormal [Unknown]
  - Pain of skin [Unknown]
  - Asthenia [Unknown]
  - Fatigue [Unknown]
